FAERS Safety Report 8241779-0 (Version None)
Quarter: 2012Q1

REPORT INFORMATION
  Report Type: 
  Country: None (occurrence: None)
  Receive Date: 20120328
  Receipt Date: 20120319
  Transmission Date: 20120608
  Serious: Yes (Other)
  Sender: FDA-Public Use
  Company Number: DE-ELI_LILLY_AND_COMPANY-DE201203005049

PATIENT
  Age: 67 Year
  Sex: Female

DRUGS (4)
  1. XIPAMIDE [Concomitant]
     Dosage: 40 MG, UNKNOWN
  2. BYDUREON [Suspect]
     Indication: TYPE 2 DIABETES MELLITUS
     Dosage: 2 MG, WEEKLY (1/W)
     Route: 058
     Dates: start: 20120316
  3. METFORMIN HCL [Concomitant]
     Dosage: 850 MG, UNKNOWN
  4. AMLODIPINE [Concomitant]
     Dosage: 10 MG, UNKNOWN

REACTIONS (5)
  - BLOOD PRESSURE INCREASED [None]
  - DIARRHOEA [None]
  - DIZZINESS [None]
  - NAUSEA [None]
  - HEART RATE INCREASED [None]
